FAERS Safety Report 10595102 (Version 1)
Quarter: 2014Q4

REPORT INFORMATION
  Report Type: Spontaneous
  Country: US (occurrence: None)
  Receive Date: 20141118
  Receipt Date: 20141118
  Transmission Date: 20150529
  Serious: Yes (Death)
  Sender: FDA-Public Use
  Company Number: 1713747-2014-999197

PATIENT
  Age: 48 Year
  Sex: Male
  Weight: 113.8 kg

DRUGS (5)
  1. VENOFER [Concomitant]
     Active Substance: IRON SUCROSE
  2. LIBERTY CYCLER [Concomitant]
     Active Substance: DEVICE
  3. PHOSLO [Concomitant]
     Active Substance: CALCIUM ACETATE
  4. LIBERTY CYCLER SET [Concomitant]
  5. DELFLEX [Suspect]
     Active Substance: CALCIUM CHLORIDE\DEXTROSE MONOHYDRATE\MAGNESIUM CHLORIDE\SODIUM CHLORIDE\SODIUM LACTATE
     Indication: CHRONIC KIDNEY DISEASE
     Dosage: PERITONEAL DIALYSIS

REACTIONS (2)
  - Coronary artery disease [None]
  - Myocardial infarction [None]

NARRATIVE: CASE EVENT DATE: 20130520
